FAERS Safety Report 21323305 (Version 3)
Quarter: 2023Q1

REPORT INFORMATION
  Report Type: Report from Study
  Country: US (occurrence: US)
  Receive Date: 20220912
  Receipt Date: 20230117
  Transmission Date: 20230418
  Serious: Yes (Other)
  Sender: FDA-Public Use
  Company Number: US-ABBVIE-22K-163-4535396-00

PATIENT
  Sex: Female

DRUGS (3)
  1. IMBRUVICA [Suspect]
     Active Substance: IBRUTINIB
     Indication: Chronic lymphocytic leukaemia
     Route: 048
  2. IMBRUVICA [Suspect]
     Active Substance: IBRUTINIB
     Indication: Chronic lymphocytic leukaemia
     Route: 048
  3. Johnson + Johnson covid-19 vaccine [Concomitant]
     Indication: COVID-19 immunisation

REACTIONS (6)
  - Micrographic skin surgery [Unknown]
  - Muscle spasms [Recovering/Resolving]
  - Cytopenia [Not Recovered/Not Resolved]
  - Basal cell carcinoma [Recovered/Resolved]
  - Stomatitis [Recovering/Resolving]
  - Dry skin [Not Recovered/Not Resolved]
